FAERS Safety Report 9571557 (Version 1)
Quarter: 2013Q4

REPORT INFORMATION
  Report Type: Report from Study
  Country: ID (occurrence: ID)
  Receive Date: 20131001
  Receipt Date: 20131001
  Transmission Date: 20140711
  Serious: Yes (Death)
  Sender: FDA-Public Use
  Company Number: ID-ROCHE-1280842

PATIENT
  Age: 89 Year
  Sex: Male

DRUGS (1)
  1. BONVIVA [Suspect]
     Indication: OSTEOPOROSIS
     Route: 048
     Dates: start: 20110623, end: 20130723

REACTIONS (1)
  - Cerebrovascular accident [Fatal]
